FAERS Safety Report 19123131 (Version 1)
Quarter: 2021Q2

REPORT INFORMATION
  Report Type: Spontaneous
  Country: US (occurrence: US)
  Receive Date: 20210412
  Receipt Date: 20210412
  Transmission Date: 20210717
  Serious: No
  Sender: FDA-Public Use
  Company Number: US-JNJFOC-20210408998

PATIENT
  Sex: Female

DRUGS (2)
  1. MENS ROGAINE EXTRA STRENGTH [Suspect]
     Active Substance: MINOXIDIL
     Indication: ALOPECIA
     Dosage: DOSE: AS DIRECTED, 1/2 CAPFUL?PRODUCT START DATE: ABOUT 22 YEARS
     Route: 061
  2. MENS ROGAINE EXTRA STRENGTH [Suspect]
     Active Substance: MINOXIDIL
     Indication: ALOPECIA
     Dosage: DOSE: AS DIRECTED WITH THE DROPPER?PRODUCT START DATE: ABOUT 22 YEARS AGO
     Route: 061

REACTIONS (3)
  - Application site pruritus [Recovered/Resolved]
  - Product use issue [Unknown]
  - Intentional product misuse [Unknown]
